FAERS Safety Report 14776679 (Version 1)
Quarter: 2018Q2

REPORT INFORMATION
  Report Type: Spontaneous
  Country: FR (occurrence: FR)
  Receive Date: 20180419
  Receipt Date: 20180419
  Transmission Date: 20180711
  Serious: Yes (Other)
  Sender: FDA-Public Use
  Company Number: FR-MERCK KGAA-2045990

PATIENT
  Age: 72 Year
  Sex: Female

DRUGS (1)
  1. NOVOTHYROX [Suspect]
     Active Substance: LEVOTHYROXINE SODIUM
     Indication: PRODUCT USED FOR UNKNOWN INDICATION

REACTIONS (22)
  - Psychiatric symptom [None]
  - Gait disturbance [None]
  - Aggression [None]
  - Fatigue [None]
  - Blood thyroid stimulating hormone decreased [None]
  - Blood calcium decreased [None]
  - Blood alkaline phosphatase decreased [None]
  - Haemoglobin decreased [Recovering/Resolving]
  - Total cholesterol/HDL ratio abnormal [None]
  - Chest pain [None]
  - Loss of personal independence in daily activities [None]
  - Hypertension [None]
  - Dizziness [None]
  - Amnesia [None]
  - Diarrhoea [None]
  - White blood cell disorder [Recovering/Resolving]
  - Somnolence [None]
  - Social avoidant behaviour [None]
  - Depression [None]
  - Apathy [None]
  - Anger [None]
  - Red blood cell count decreased [None]

NARRATIVE: CASE EVENT DATE: 2017
